FAERS Safety Report 17452167 (Version 1)
Quarter: 2020Q1

REPORT INFORMATION
  Report Type: Spontaneous
  Country: GB (occurrence: GB)
  Receive Date: 20200224
  Receipt Date: 20200224
  Transmission Date: 20200409
  Serious: Yes (Other)
  Sender: FDA-Public Use
  Company Number: GB-PFIZER INC-2020078091

PATIENT
  Age: 75 Year
  Sex: Male

DRUGS (3)
  1. TRITACE [Suspect]
     Active Substance: RAMIPRIL
     Dosage: 5 MG
     Route: 065
  2. TRITACE [Suspect]
     Active Substance: RAMIPRIL
     Dosage: 2.5 MG
  3. TRITACE [Suspect]
     Active Substance: RAMIPRIL
     Dosage: 5 MG
     Route: 065

REACTIONS (2)
  - Condition aggravated [Unknown]
  - Erectile dysfunction [Unknown]
